FAERS Safety Report 4645593-4 (Version None)
Quarter: 2005Q2

REPORT INFORMATION
  Report Type: 
  Country: None (occurrence: None)
  Receive Date: 20050331
  Receipt Date: 20050117
  Transmission Date: 20051028
  Serious: No
  Sender: FDA-Public Use
  Company Number: 05P-163-0286876-00

PATIENT
  Age: 73 Year
  Sex: Male
  Weight: 78.0187 kg

DRUGS (17)
  1. HUMIRA [Suspect]
     Indication: RHEUMATOID ARTHRITIS
     Dosage: 40 MG, SUBCUTANEOUS
     Route: 058
     Dates: start: 20040101, end: 20041201
  2. METOPROLOL TARTRATE [Concomitant]
  3. DIGOXIN [Concomitant]
  4. PREDNISONE [Concomitant]
  5. FOLIC ACID [Concomitant]
  6. MIDL [Concomitant]
  7. FUROSEMIDE [Concomitant]
  8. POTASSIUM CHLORIDE [Concomitant]
  9. ACETYLSALICYLIC ACID [Concomitant]
  10. NICOTINIC ACID [Concomitant]
  11. AMLODIPINE BESYLATE [Concomitant]
  12. FLOMAX [Concomitant]
  13. CRESTOR [Concomitant]
  14. ALLOPURINOL [Concomitant]
  15. CLARITIN NR [Concomitant]
  16. DIPHENHYDRAMINE HCL [Concomitant]
  17. VICODIN [Concomitant]

REACTIONS (2)
  - HEPATIC LESION [None]
  - PANCREATIC CARCINOMA [None]
